FAERS Safety Report 18969416 (Version 1)
Quarter: 2021Q1

REPORT INFORMATION
  Report Type: Spontaneous
  Country: US (occurrence: US)
  Receive Date: 20210304
  Receipt Date: 20210304
  Transmission Date: 20210420
  Serious: No
  Sender: FDA-Public Use
  Company Number: US-INDIVIOR LIMITED- INDV-128552-2021

PATIENT

DRUGS (1)
  1. SUBLOCADE [Suspect]
     Active Substance: BUPRENORPHINE
     Indication: DRUG DEPENDENCE
     Dosage: 300 MILLIGRAM, QMO
     Route: 058

REACTIONS (4)
  - Injection site erythema [Unknown]
  - Injection site irritation [Unknown]
  - Drug delivery system removal [Recovered/Resolved]
  - Wrong technique in product usage process [Recovered/Resolved]
